FAERS Safety Report 11073916 (Version 2)
Quarter: 2015Q3

REPORT INFORMATION
  Report Type: Spontaneous
  Country: JP (occurrence: JP)
  Receive Date: 20150429
  Receipt Date: 20150902
  Transmission Date: 20151125
  Serious: Yes (Other)
  Sender: FDA-Public Use
  Company Number: JP-ROCHE-1568964

PATIENT
  Age: 65 Year
  Sex: Female

DRUGS (1)
  1. HERCEPTIN [Suspect]
     Active Substance: TRASTUZUMAB
     Indication: BREAST CANCER
     Dosage: B METHOD
     Route: 041

REACTIONS (6)
  - Ulcer [Unknown]
  - Pleural effusion [Unknown]
  - Skin ulcer [Unknown]
  - Ascites [Unknown]
  - Skin infection [Unknown]
  - Skin necrosis [Unknown]
